FAERS Safety Report 15296048 (Version 2)
Quarter: 2018Q4

REPORT INFORMATION
  Report Type: Spontaneous
  Country: US (occurrence: US)
  Receive Date: 20180820
  Receipt Date: 20181008
  Transmission Date: 20190204
  Serious: No
  Sender: FDA-Public Use
  Company Number: US-PFIZER INC-2018329531

PATIENT
  Age: 34 Year
  Sex: Female

DRUGS (2)
  1. XYLOCAINE [Suspect]
     Active Substance: LIDOCAINE HYDROCHLORIDE
     Indication: LIPOATROPHY
     Dosage: 2CC INJECTION IN THE FACE
     Dates: start: 20180719
  2. WATER BACTERIOSTATIC [Suspect]
     Active Substance: WATER
     Dosage: UNK

REACTIONS (4)
  - Injection site warmth [Recovered/Resolved]
  - Erythema [Recovered/Resolved]
  - Pain [Recovered/Resolved]
  - Swelling [Recovered/Resolved]

NARRATIVE: CASE EVENT DATE: 20180720
